FAERS Safety Report 9548273 (Version 4)
Quarter: 2017Q2

REPORT INFORMATION
  Report Type: Report from Study
  Country: BR (occurrence: BR)
  Receive Date: 20130924
  Receipt Date: 20170504
  Transmission Date: 20170830
  Serious: Yes (Other)
  Sender: FDA-Public Use
  Company Number: BR-ROCHE-1197355

PATIENT
  Sex: Female
  Weight: 70 kg

DRUGS (5)
  1. HYDROCOBAMINE [Concomitant]
     Active Substance: HYDROXOCOBALAMIN HYDROCHLORIDE
     Indication: HYPERTENSION
  2. LOSARTAN. [Concomitant]
     Active Substance: LOSARTAN
     Indication: HYPERTENSION
  3. ACTEMRA [Suspect]
     Active Substance: TOCILIZUMAB
     Indication: RHEUMATOID ARTHRITIS
     Route: 042
     Dates: start: 20110325
  4. CAPTOPRIL. [Concomitant]
     Active Substance: CAPTOPRIL
  5. MABTHERA [Suspect]
     Active Substance: RITUXIMAB
     Indication: RHEUMATOID ARTHRITIS
     Route: 042

REACTIONS (10)
  - Wound [Recovered/Resolved]
  - Tendon rupture [Unknown]
  - Bedridden [Not Recovered/Not Resolved]
  - Joint destruction [Not Recovered/Not Resolved]
  - Cardiovascular disorder [Unknown]
  - Ill-defined disorder [Recovering/Resolving]
  - Influenza [Recovered/Resolved]
  - Pain [Unknown]
  - Sciatic nerve neuropathy [Unknown]
  - Visual impairment [Recovering/Resolving]
